FAERS Safety Report 10069707 (Version 1)
Quarter: 2014Q2

REPORT INFORMATION
  Report Type: Spontaneous
  Country: US (occurrence: None)
  Receive Date: 20140409
  Receipt Date: 20140409
  Transmission Date: 20141212
  Serious: Yes (Disabling)
  Sender: FDA-Public Use
  Company Number: None

PATIENT
  Age: 66 Year
  Sex: Female
  Weight: 99.79 kg

DRUGS (4)
  1. LEVOFLOXACIN [Suspect]
     Indication: COUGH
     Dosage: ONCE DAILY, TAKEN BY MOUTH
     Route: 048
     Dates: start: 20140326, end: 20140331
  2. LEVOFLOXACIN [Suspect]
     Indication: PYREXIA
     Dosage: ONCE DAILY, TAKEN BY MOUTH
     Route: 048
     Dates: start: 20140326, end: 20140331
  3. LEVOFLOXACIN [Suspect]
     Indication: CHILLS
     Dosage: ONCE DAILY, TAKEN BY MOUTH
     Route: 048
     Dates: start: 20140326, end: 20140331
  4. LEVOFLOXACIN [Suspect]
     Indication: PAIN
     Dosage: ONCE DAILY, TAKEN BY MOUTH
     Route: 048
     Dates: start: 20140326, end: 20140331

REACTIONS (1)
  - Tendonitis [None]
